FAERS Safety Report 25599014 (Version 1)
Quarter: 2025Q3

REPORT INFORMATION
  Report Type: Spontaneous
  Country: EU (occurrence: EU)
  Receive Date: 20250724
  Receipt Date: 20250724
  Transmission Date: 20251021
  Serious: Yes (Other)
  Sender: CELLTRION
  Company Number: EU-SAMSUNG BIOEPIS-SB-2025-11370

PATIENT

DRUGS (2)
  1. USTEKINUMAB [Suspect]
     Active Substance: USTEKINUMAB
     Indication: Crohn^s disease
  2. UNSPECIFIED INGREDIENT [Suspect]
     Active Substance: UNSPECIFIED INGREDIENT
     Indication: Contraception

REACTIONS (5)
  - Cavernous sinus thrombosis [Recovered/Resolved]
  - Crohn^s disease [Recovered/Resolved]
  - Ophthalmic vein thrombosis [Recovered/Resolved]
  - Myositis [Recovered/Resolved]
  - Loss of therapeutic response [Unknown]
